FAERS Safety Report 17413598 (Version 1)
Quarter: 2020Q1

REPORT INFORMATION
  Report Type: Spontaneous
  Country: US (occurrence: US)
  Receive Date: 20200213
  Receipt Date: 20200213
  Transmission Date: 20200409
  Serious: Yes (Life-Threatening, Hospitalization, Disabling, Other)
  Sender: FDA-Public Use
  Company Number: None

PATIENT
  Age: 43 Year
  Sex: Female
  Weight: 64.8 kg

DRUGS (10)
  1. MORPHINE [Concomitant]
     Active Substance: MORPHINE
  2. BIOTIN [Concomitant]
     Active Substance: BIOTIN
  3. LAMOTRIGINE. [Suspect]
     Active Substance: LAMOTRIGINE
     Indication: SEIZURE
     Dosage: ?          QUANTITY:180 TABLET(S);?
     Route: 048
     Dates: start: 20051101, end: 20200201
  4. DIAZEPAM. [Concomitant]
     Active Substance: DIAZEPAM
  5. DICLOFENAC [Concomitant]
     Active Substance: DICLOFENAC
  6. ELDERBERRY SYRUP [Concomitant]
     Active Substance: DIETARY SUPPLEMENT\HERBALS
  7. HYDROXYZINE PAMOATE. [Concomitant]
     Active Substance: HYDROXYZINE PAMOATE
  8. HYDROCODONE [Concomitant]
     Active Substance: HYDROCODONE
  9. OMEPRAZOLE. [Concomitant]
     Active Substance: OMEPRAZOLE
  10. MULTIVITAMIN [Concomitant]
     Active Substance: VITAMINS

REACTIONS (3)
  - Panic attack [None]
  - Condition aggravated [None]
  - Ataxia [None]

NARRATIVE: CASE EVENT DATE: 20051101
